FAERS Safety Report 7177484-1 (Version None)
Quarter: 2010Q4

REPORT INFORMATION
  Report Type: 
  Country: None (occurrence: None)
  Receive Date: 20101123
  Receipt Date: 20100730
  Transmission Date: 20110411
  Serious: No
  Sender: FDA-Public Use
  Company Number: 015071

PATIENT
  Sex: Female
  Weight: 72.5 kg

DRUGS (8)
  1. CIMZIA [Suspect]
     Indication: CROHN'S DISEASE
     Dosage: 400 MG 1X/3 WEEKS SUBCUTANEOUS
     Route: 058
     Dates: start: 20090801
  2. MESALAMINE [Concomitant]
  3. ENTOCORT EC [Concomitant]
  4. ESZOPICLONE [Concomitant]
  5. ACIPHEX [Concomitant]
  6. CYMBALTA [Concomitant]
  7. AMBIEN [Concomitant]
  8. IMIPRAMINE [Concomitant]

REACTIONS (6)
  - DEPRESSION [None]
  - FATIGUE [None]
  - MIDDLE INSOMNIA [None]
  - MUSCLE SPASMS [None]
  - PRODUCTIVE COUGH [None]
  - RASH MACULO-PAPULAR [None]
